FAERS Safety Report 10786762 (Version 5)
Quarter: 2015Q2

REPORT INFORMATION
  Report Type: Report from Study
  Country: US (occurrence: US)
  Receive Date: 20150211
  Receipt Date: 20150528
  Transmission Date: 20150821
  Serious: Yes (Death, Life-Threatening, Hospitalization, Other)
  Sender: FDA-Public Use
  Company Number: US-BIOGENIDEC-2015BI013668

PATIENT
  Age: 32 Year
  Sex: Female

DRUGS (7)
  1. FISH OIL [Concomitant]
     Active Substance: FISH OIL
  2. BACLOFEN. [Concomitant]
     Active Substance: BACLOFEN
  3. DETROL LA [Concomitant]
     Active Substance: TOLTERODINE TARTRATE
  4. CRANBERRY. [Concomitant]
     Active Substance: CRANBERRY
  5. AMPYRA [Concomitant]
     Active Substance: DALFAMPRIDINE
     Indication: MULTIPLE SCLEROSIS
     Route: 048
     Dates: start: 201006
  6. TYSABRI [Suspect]
     Active Substance: NATALIZUMAB
     Indication: MULTIPLE SCLEROSIS
     Route: 042
     Dates: start: 20061204, end: 20141230
  7. XANAX [Concomitant]
     Active Substance: ALPRAZOLAM

REACTIONS (4)
  - Progressive multifocal leukoencephalopathy [Fatal]
  - Prescribed underdose [Not Recovered/Not Resolved]
  - Seizure [Unknown]
  - Terminal state [Unknown]

NARRATIVE: CASE EVENT DATE: 2014
